FAERS Safety Report 5279273-1 (Version None)
Quarter: 2007Q1

REPORT INFORMATION
  Report Type: 
  Country: None (occurrence: None)
  Receive Date: 20070328
  Receipt Date: 20060616
  Transmission Date: 20070707
  Serious: No
  Sender: FDA-Public Use
  Company Number: US-AMGEN-KDL183252

PATIENT
  Sex: Female

DRUGS (4)
  1. NEULASTA [Suspect]
     Indication: CHEMOTHERAPY
     Dates: start: 20060501
  2. CYCLOPHOSPHAMIDE [Concomitant]
  3. EPIRUBICIN [Concomitant]
  4. FLUOROURACIL [Concomitant]

REACTIONS (2)
  - LYMPHADENOPATHY [None]
  - NEUTROPHIL COUNT DECREASED [None]
